FAERS Safety Report 17503996 (Version 1)
Quarter: 2020Q1

REPORT INFORMATION
  Report Type: Spontaneous
  Country: US (occurrence: US)
  Receive Date: 20200305
  Receipt Date: 20200305
  Transmission Date: 20200409
  Serious: No
  Sender: FDA-Public Use
  Company Number: US-ROCHE-2357585

PATIENT
  Age: 51 Year
  Sex: Female
  Weight: 104.42 kg

DRUGS (1)
  1. XOLAIR [Suspect]
     Active Substance: OMALIZUMAB
     Indication: ASTHMA
     Route: 058
     Dates: start: 20150427, end: 20190613

REACTIONS (2)
  - Paraesthesia [Recovered/Resolved]
  - Hypoaesthesia [Recovered/Resolved]

NARRATIVE: CASE EVENT DATE: 20190613
